FAERS Safety Report 6044307-3 (Version None)
Quarter: 2009Q1

REPORT INFORMATION
  Report Type: 
  Country: None (occurrence: None)
  Receive Date: 20090120
  Receipt Date: 20080723
  Transmission Date: 20090719
  Serious: No
  Sender: FDA-Public Use
  Company Number: US-BAYER-200813173BCC

PATIENT
  Age: 67 Year
  Sex: Female
  Weight: 72 kg

DRUGS (7)
  1. ALEVE [Suspect]
     Indication: ARTHRALGIA
     Dosage: TOTAL DAILY DOSE: 220 MG  UNIT DOSE: 220 MG
     Route: 048
     Dates: start: 20080101
  2. FISH OIL [Concomitant]
  3. VITAMIN [Concomitant]
  4. CALTRATE [Concomitant]
  5. ASPIRIN [Concomitant]
  6. GLUCOSAMINE [Concomitant]
  7. LOVASTATIN [Concomitant]

REACTIONS (1)
  - BLOOD PRESSURE DECREASED [None]
